FAERS Safety Report 23255027 (Version 1)
Quarter: 2023Q4

REPORT INFORMATION
  Report Type: Spontaneous
  Country: US (occurrence: US)
  Receive Date: 20231203
  Receipt Date: 20231203
  Transmission Date: 20240110
  Serious: No
  Sender: FDA-Public Use
  Company Number: US-AMNEAL PHARMACEUTICALS-2023-AMRX-00313

PATIENT
  Age: 45 Year
  Sex: Male
  Weight: 115.19 kg

DRUGS (3)
  1. ISOTRETINOIN [Suspect]
     Active Substance: ISOTRETINOIN
     Indication: Product used for unknown indication
     Dosage: UNK
     Route: 065
     Dates: start: 20221018, end: 20230123
  2. ATEROL [Concomitant]
     Indication: Product used for unknown indication
     Dosage: 30 MG
     Route: 065
  3. TRAMADOL [Concomitant]
     Active Substance: TRAMADOL\TRAMADOL HYDROCHLORIDE
     Indication: Product used for unknown indication
     Dosage: 40 MG
     Route: 065

REACTIONS (2)
  - Erectile dysfunction [Unknown]
  - Hot flush [Unknown]

NARRATIVE: CASE EVENT DATE: 20230123
